FAERS Safety Report 25220082 (Version 2)
Quarter: 2025Q3

REPORT INFORMATION
  Report Type: Spontaneous
  Country: US (occurrence: US)
  Receive Date: 20250421
  Receipt Date: 20250804
  Transmission Date: 20251021
  Serious: No
  Sender: SANDOZ
  Company Number: US-SANDOZ-SDZ2025US024156

PATIENT
  Sex: Female

DRUGS (2)
  1. HYRIMOZ [Suspect]
     Active Substance: ADALIMUMAB-ADAZ
     Indication: Product used for unknown indication
     Dosage: UNK, Q2W, HYRIMOZ (ADALIMUMAB-ADAZ) 40MG INJECTION, FOR SUBCUTANEOUS USE IN PREFILLED PEN, 40MG/0.4M
     Route: 058
  2. HYRIMOZ [Suspect]
     Active Substance: ADALIMUMAB-ADAZ
     Indication: Product used for unknown indication
     Dosage: UNK, Q2W, HYRIMOZ (ADALIMUMAB-ADAZ) 40MG INJECTION, FOR SUBCUTANEOUS USE IN PREFILLED PEN, 40MG/0.4M
     Route: 058

REACTIONS (4)
  - Accidental exposure to product [Unknown]
  - Exposure via skin contact [Unknown]
  - Drug dose omission by device [Unknown]
  - Device malfunction [Unknown]
